FAERS Safety Report 25757804 (Version 1)
Quarter: 2025Q3

REPORT INFORMATION
  Report Type: Spontaneous
  Country: US (occurrence: US)
  Receive Date: 20250903
  Receipt Date: 20250903
  Transmission Date: 20251021
  Serious: No
  Sender: ELI LILLY AND COMPANY
  Company Number: US-ELI_LILLY_AND_COMPANY-US202509001101

PATIENT
  Sex: Female

DRUGS (2)
  1. TALTZ [Suspect]
     Active Substance: IXEKIZUMAB
     Indication: Psoriasis
     Route: 065
  2. TALTZ [Suspect]
     Active Substance: IXEKIZUMAB
     Indication: Arthropathy

REACTIONS (1)
  - Drug ineffective [Unknown]
